FAERS Safety Report 9729719 (Version 1)
Quarter: 2013Q4

REPORT INFORMATION
  Report Type: Spontaneous
  Country: US (occurrence: US)
  Receive Date: 20131204
  Receipt Date: 20131204
  Transmission Date: 20140711
  Serious: No
  Sender: FDA-Public Use
  Company Number: US-GILEAD-2009-0021765

PATIENT
  Age: 73 Year
  Sex: Male

DRUGS (13)
  1. LETAIRIS [Suspect]
     Indication: PULMONARY ARTERIAL HYPERTENSION
     Route: 048
     Dates: start: 20090415
  2. FUROSEMIDE [Concomitant]
  3. HYDRALAZINE [Concomitant]
  4. DIGOXIN [Concomitant]
  5. AMIODARONE [Concomitant]
  6. ISOSORBIDE MONONITRATE [Concomitant]
  7. ASPIRIN [Concomitant]
  8. PLAVIX [Concomitant]
  9. OMEPRAZOLE [Concomitant]
  10. NITRO-DUR [Concomitant]
  11. GLYBURIDE [Concomitant]
  12. LIPITOR [Concomitant]
  13. BUSPIRONE [Concomitant]

REACTIONS (1)
  - Oedema peripheral [Recovering/Resolving]
